FAERS Safety Report 20930235 (Version 1)
Quarter: 2022Q2

REPORT INFORMATION
  Report Type: Report from Study
  Country: US (occurrence: US)
  Receive Date: 20220608
  Receipt Date: 20220608
  Transmission Date: 20220720
  Serious: No
  Sender: FDA-Public Use
  Company Number: US-NOVARTISTESTPH-NVSC2022US130829

PATIENT
  Sex: Female

DRUGS (1)
  1. SCEMBLIX [Suspect]
     Active Substance: ASCIMINIB HYDROCHLORIDE
     Indication: Philadelphia positive chronic myeloid leukaemia
     Dosage: 20 MG, BID
     Route: 048

REACTIONS (3)
  - Coagulopathy [Recovering/Resolving]
  - Upper respiratory tract infection [Recovered/Resolved]
  - Blood bilirubin increased [Not Recovered/Not Resolved]
